FAERS Safety Report 6099914-9 (Version None)
Quarter: 2009Q1

REPORT INFORMATION
  Report Type: 
  Country: None (occurrence: None)
  Receive Date: 20090302
  Receipt Date: 20090302
  Transmission Date: 20090719
  Serious: Yes (Hospitalization, Other)
  Sender: FDA-Public Use
  Company Number: None

PATIENT
  Sex: Female
  Weight: 15.6 kg

DRUGS (1)
  1. GAMMAGUARD [Suspect]
     Indication: KAWASAKI'S DISEASE
     Dosage: 31 GM X1 IV DRIP
     Route: 041
     Dates: start: 20090108, end: 20090110

REACTIONS (1)
  - HYPOTENSION [None]
